FAERS Safety Report 6788306-2 (Version None)
Quarter: 2010Q2

REPORT INFORMATION
  Report Type: 
  Country: None (occurrence: None)
  Receive Date: 20100623
  Receipt Date: 20090201
  Transmission Date: 20101027
  Serious: Yes (Hospitalization)
  Sender: FDA-Public Use
  Company Number: US-PFIZER INC-2008011063

PATIENT
  Age: 65 Year
  Sex: Female
  Weight: 59.42 kg

DRUGS (6)
  1. NIFEDIPINE [Suspect]
     Indication: HYPERTENSION
     Dosage: QD
     Route: 048
     Dates: start: 20080117, end: 20080126
  2. NIFEDIPINE [Suspect]
     Dosage: QD
     Route: 048
     Dates: start: 20080126, end: 20080131
  3. COREG [Concomitant]
     Dosage: BID
     Route: 048
     Dates: start: 20071018
  4. VALSARTAN [Concomitant]
     Dosage: QD
     Route: 048
     Dates: start: 20071018
  5. ASPIRIN [Concomitant]
     Dosage: QD
     Route: 048
     Dates: start: 20071001
  6. ALPRAZOLAM [Concomitant]
     Dosage: PRN
     Route: 048
     Dates: start: 20050101

REACTIONS (3)
  - HEADACHE [None]
  - MIGRAINE [None]
  - PARAESTHESIA [None]
